FAERS Safety Report 6459094-4 (Version None)
Quarter: 2009Q4

REPORT INFORMATION
  Report Type: 
  Country: None (occurrence: None)
  Receive Date: 20091125
  Receipt Date: 20091125
  Transmission Date: 20100525
  Serious: Yes (Life-Threatening, Other)
  Sender: FDA-Public Use
  Company Number: None

PATIENT
  Age: 50 Year
  Sex: Female
  Weight: 52.1637 kg

DRUGS (2)
  1. CITALOPRAM HYDROBROMIDE [Suspect]
     Indication: ANXIETY
     Dosage: 40MG  DAILY A.M. PO
     Route: 048
     Dates: start: 20090713, end: 20091124
  2. CITALOPRAM HYDROBROMIDE [Suspect]
     Indication: DEPRESSION
     Dosage: 40MG  DAILY A.M. PO
     Route: 048
     Dates: start: 20090713, end: 20091124

REACTIONS (12)
  - ANGER [None]
  - DISTURBANCE IN ATTENTION [None]
  - DIZZINESS [None]
  - DRUG WITHDRAWAL SYNDROME [None]
  - DYSKINESIA [None]
  - ELECTRIC SHOCK [None]
  - GAIT DISTURBANCE [None]
  - MALAISE [None]
  - MOOD SWINGS [None]
  - SUICIDAL IDEATION [None]
  - TINNITUS [None]
  - VOMITING [None]
